FAERS Safety Report 4724484-4 (Version None)
Quarter: 2005Q3

REPORT INFORMATION
  Report Type: 
  Country: None (occurrence: None)
  Receive Date: 20050720
  Receipt Date: 20050720
  Transmission Date: 20060218
  Serious: Yes (Hospitalization)
  Sender: FDA-Public Use
  Company Number: None

PATIENT
  Sex: Female

DRUGS (5)
  1. GEMZAR [Suspect]
     Indication: PANCREATIC DISORDER
     Dosage: 1 GM/M2 IV Q 2 WKS
     Route: 042
     Dates: start: 20050623
  2. GEMZAR [Suspect]
     Indication: PANCREATIC DISORDER
     Dosage: 1 GM/M2 IV Q 2 WKS
     Route: 042
     Dates: start: 20050707
  3. OXALI [Suspect]
     Dosage: 100 MG/M2 IV Q 2 WK
     Route: 042
     Dates: start: 20050623
  4. OXALI [Suspect]
     Dosage: 100 MG/M2 IV Q 2 WK
     Route: 042
     Dates: start: 20050707
  5. LAPATINIB [Suspect]
     Dosage: 1000 MG PO QD
     Route: 048
     Dates: start: 20050623, end: 20050716

REACTIONS (8)
  - ACTIVITIES OF DAILY LIVING IMPAIRED [None]
  - ASTHENIA [None]
  - DIARRHOEA [None]
  - DISEASE PROGRESSION [None]
  - DIZZINESS [None]
  - DYSSTASIA [None]
  - FALL [None]
  - FATIGUE [None]
